FAERS Safety Report 18986400 (Version 3)
Quarter: 2021Q2

REPORT INFORMATION
  Report Type: Report from Study
  Country: US (occurrence: US)
  Receive Date: 20210309
  Receipt Date: 20210601
  Transmission Date: 20210717
  Serious: Yes (Other)
  Sender: FDA-Public Use
  Company Number: NVSC2021US042315

PATIENT
  Age: 58 Year
  Sex: Female

DRUGS (5)
  1. KESIMPTA [Suspect]
     Active Substance: OFATUMUMAB
     Indication: CLINICALLY ISOLATED SYNDROME
     Dosage: 20 MG, QMO  (BENEATH THE SKIN,USUALLY VIA INJECTION)
     Route: 058
     Dates: start: 20210221
  2. KESIMPTA [Suspect]
     Active Substance: OFATUMUMAB
     Indication: RELAPSING-REMITTING MULTIPLE SCLEROSIS
  3. BENADRYL [Concomitant]
     Active Substance: DIPHENHYDRAMINE HYDROCHLORIDE
     Indication: PRODUCT USED FOR UNKNOWN INDICATION
     Dosage: UNK
     Route: 065
  4. KESIMPTA [Suspect]
     Active Substance: OFATUMUMAB
     Indication: RELAPSING MULTIPLE SCLEROSIS
     Dosage: 20 MG, QMO (BENEATH THE SKIN,USUALLY VIA INJECTION)
     Route: 058
     Dates: start: 20210215
  5. KESIMPTA [Suspect]
     Active Substance: OFATUMUMAB
     Indication: SECONDARY PROGRESSIVE MULTIPLE SCLEROSIS

REACTIONS (6)
  - Pain [Recovered/Resolved]
  - Erythema [Recovering/Resolving]
  - Chills [Recovered/Resolved]
  - Fatigue [Recovering/Resolving]
  - Rash [Unknown]
  - Headache [Recovering/Resolving]

NARRATIVE: CASE EVENT DATE: 20210215
